FAERS Safety Report 17127839 (Version 1)
Quarter: 2019Q4

REPORT INFORMATION
  Report Type: Spontaneous
  Country: US (occurrence: US)
  Receive Date: 20191115
  Receipt Date: 20191115
  Transmission Date: 20200122
  Serious: No
  Sender: FDA-Public Use
  Company Number: None

PATIENT
  Age: 57 Year
  Sex: Female

DRUGS (2)
  1. VERZENIO [Suspect]
     Active Substance: ABEMACICLIB
     Indication: BREAST CANCER FEMALE
     Dosage: ?          OTHER DOSE:300MG DAILY;OTHER FREQUENCY:2 TABS DAILY;?
     Route: 048
     Dates: start: 20191017
  2. VERZENIO [Suspect]
     Active Substance: ABEMACICLIB
     Indication: METASTASES TO LIVER
     Dosage: ?          OTHER DOSE:300MG DAILY;OTHER FREQUENCY:2 TABS DAILY;?
     Route: 048
     Dates: start: 20191017

REACTIONS (1)
  - Diarrhoea [None]

NARRATIVE: CASE EVENT DATE: 20191024
